FAERS Safety Report 7692094-5 (Version None)
Quarter: 2011Q3

REPORT INFORMATION
  Report Type: 
  Country: None (occurrence: None)
  Receive Date: 20110818
  Receipt Date: 20110809
  Transmission Date: 20111222
  Serious: Yes (Disabling)
  Sender: FDA-Public Use
  Company Number: JP-ASTRAZENECA-2011SE05965

PATIENT
  Age: 43 Year
  Sex: Female

DRUGS (2)
  1. ROPIVACAINE HYDROCHLORIDE [Suspect]
     Dosage: 260 MG FOR TWO DAYS, DIV 26ML IN TOTAL FOR 23 HRS
     Route: 053
     Dates: start: 20101227, end: 20101228
  2. ROPIVACAINE HYDROCHLORIDE [Suspect]
     Indication: NERVE BLOCK
     Route: 053
     Dates: start: 20101227, end: 20101227

REACTIONS (1)
  - PARALYSIS [None]
